FAERS Safety Report 21248196 (Version 4)
Quarter: 2022Q4

REPORT INFORMATION
  Report Type: Report from Study
  Country: US (occurrence: US)
  Receive Date: 20220824
  Receipt Date: 20221115
  Transmission Date: 20230113
  Serious: No
  Sender: FDA-Public Use
  Company Number: US-NOVARTISTESTPH-NVSC2022US189183

PATIENT
  Sex: Female

DRUGS (4)
  1. JADENU [Suspect]
     Active Substance: DEFERASIROX
     Indication: Polycythaemia vera
     Dosage: 180 MG, QD
     Route: 048
     Dates: start: 202009
  2. JADENU [Suspect]
     Active Substance: DEFERASIROX
     Indication: Myelofibrosis
     Dosage: 360 MG, QD
     Route: 048
     Dates: start: 202111
  3. JADENU [Suspect]
     Active Substance: DEFERASIROX
     Indication: Iron metabolism disorder
     Dosage: 180 MG, QD
     Route: 048
     Dates: start: 202208
  4. JADENU [Suspect]
     Active Substance: DEFERASIROX
     Dosage: 180 MG, QD
     Route: 048
     Dates: start: 20200901

REACTIONS (7)
  - Diarrhoea [Unknown]
  - Serum ferritin increased [Not Recovered/Not Resolved]
  - Alopecia [Unknown]
  - Blood glucose increased [Unknown]
  - Alanine aminotransferase increased [Unknown]
  - Aspartate aminotransferase increased [Unknown]
  - Product use in unapproved indication [Unknown]
